FAERS Safety Report 8077445-4 (Version None)
Quarter: 2012Q1

REPORT INFORMATION
  Report Type: 
  Country: None (occurrence: None)
  Receive Date: 20120127
  Receipt Date: 20120123
  Transmission Date: 20120608
  Serious: Yes (Death, Hospitalization)
  Sender: FDA-Public Use
  Company Number: PHHY2011JP27384

PATIENT
  Sex: Male

DRUGS (4)
  1. AFINITOR [Suspect]
     Indication: METASTATIC RENAL CELL CARCINOMA
     Dosage: 10 MG, DAILY
     Route: 048
     Dates: start: 20101216, end: 20110124
  2. FAMOTIDINE [Concomitant]
     Dosage: 20 MG
     Route: 048
     Dates: start: 20101209, end: 20110129
  3. LENDORMIN [Concomitant]
     Dosage: 0.25 MG
     Route: 048
     Dates: start: 20101209, end: 20110124
  4. SUNITINIB MALATE [Concomitant]
     Dosage: 37.5 MG
     Route: 048
     Dates: start: 20100906, end: 20101116

REACTIONS (3)
  - C-REACTIVE PROTEIN INCREASED [None]
  - NEOPLASM PROGRESSION [None]
  - NEOPLASM MALIGNANT [None]
